FAERS Safety Report 12503473 (Version 5)
Quarter: 2019Q3

REPORT INFORMATION
  Report Type: Spontaneous
  Country: US (occurrence: US)
  Receive Date: 20160628
  Receipt Date: 20190712
  Transmission Date: 20191004
  Serious: No
  Sender: FDA-Public Use
  Company Number: US-PFIZER INC-2016291777

PATIENT
  Age: 75 Year
  Sex: Female

DRUGS (1)
  1. AROMASIN [Suspect]
     Active Substance: EXEMESTANE
     Indication: BREAST CANCER FEMALE
     Dosage: 25 MG, UNK
     Dates: start: 201602

REACTIONS (6)
  - Somnolence [Recovered/Resolved]
  - Pain [Unknown]
  - Osteoporosis [Unknown]
  - Neoplasm progression [Unknown]
  - Fatigue [Recovered/Resolved]
  - Joint swelling [Recovered/Resolved]
